FAERS Safety Report 4515609-4 (Version None)
Quarter: 2004Q4

REPORT INFORMATION
  Report Type: 
  Country: None (occurrence: None)
  Receive Date: 20041126
  Receipt Date: 20041116
  Transmission Date: 20050328
  Serious: Yes (Other)
  Sender: FDA-Public Use
  Company Number: 2004095387

PATIENT
  Sex: Female

DRUGS (1)
  1. LATANOPROST [Suspect]
     Indication: PIGMENTARY GLAUCOMA
     Dosage: OPHTHALMIC
     Route: 047
     Dates: start: 19980101

REACTIONS (3)
  - CONDITION AGGRAVATED [None]
  - CYANOPSIA [None]
  - MYOPIA [None]
